FAERS Safety Report 12395613 (Version 1)
Quarter: 2016Q2

REPORT INFORMATION
  Report Type: Spontaneous
  Country: NL (occurrence: NL)
  Receive Date: 20160523
  Receipt Date: 20160523
  Transmission Date: 20160815
  Serious: Yes (Hospitalization)
  Sender: FDA-Public Use
  Company Number: NL-BAXALTA-2016BLT002239

PATIENT
  Sex: Female

DRUGS (2)
  1. KIOVIG [Suspect]
     Active Substance: HUMAN IMMUNOGLOBULIN G
     Dosage: 20 G, UNK
     Route: 065
     Dates: start: 20151023
  2. KIOVIG [Suspect]
     Active Substance: HUMAN IMMUNOGLOBULIN G
     Indication: PRODUCT USED FOR UNKNOWN INDICATION
     Dosage: 20 G, UNK
     Route: 065
     Dates: start: 20150918

REACTIONS (9)
  - Nausea [Unknown]
  - Chills [Unknown]
  - Dizziness [Recovered/Resolved]
  - Body temperature increased [Unknown]
  - Malaise [Recovered/Resolved]
  - Respiratory rate increased [Recovered/Resolved]
  - Chest pain [Unknown]
  - Vomiting [Unknown]
  - Hypersensitivity [Unknown]

NARRATIVE: CASE EVENT DATE: 20150918
